FAERS Safety Report 7371341-3 (Version None)
Quarter: 2011Q1

REPORT INFORMATION
  Report Type: 
  Country: None (occurrence: None)
  Receive Date: 20110324
  Receipt Date: 20101018
  Transmission Date: 20110831
  Serious: Yes (Other)
  Sender: FDA-Public Use
  Company Number: US-BAYER-201013286NA

PATIENT
  Sex: Female
  Weight: 54.545 kg

DRUGS (31)
  1. CLINDESSE [Concomitant]
     Dosage: WITH REFILL 3 MONTHS
     Route: 061
     Dates: start: 20080101
  2. NORVASC [Concomitant]
  3. YASMIN [Suspect]
     Route: 048
     Dates: start: 20081028, end: 20081201
  4. DICYCLOMINE [Concomitant]
     Dates: start: 20081201
  5. DOXYCYCLINE HYCLATE [Concomitant]
     Dates: start: 20080901, end: 20081215
  6. CYCLOBENZAPRINE [Concomitant]
     Dates: start: 20080301
  7. DOXYCYCLINE [Concomitant]
     Dates: start: 20080801
  8. UNCODEABLE ^UNCLASSIFIABLE^ [Concomitant]
     Dates: start: 20080801
  9. ACYCLOVIR [Concomitant]
     Dates: start: 20080201
  10. ACYCLOVIR [Concomitant]
     Dates: start: 20081201
  11. DIFLUCAN [Concomitant]
     Dates: start: 20080901, end: 20081215
  12. UNCODEABLE ^UNCLASSIFIABLE^ [Concomitant]
     Dates: start: 20090101
  13. UNCODEABLE ^UNCLASSIFIABLE^ [Concomitant]
  14. CEPHALEXIN [Concomitant]
     Dates: start: 20080201
  15. OCELLA [Suspect]
     Indication: MENORRHAGIA
     Route: 048
     Dates: start: 20081101, end: 20091115
  16. LOESTRIN FE 1/20 [Concomitant]
     Indication: ORAL CONTRACEPTION
     Route: 048
     Dates: start: 20091217
  17. CITALOPRAM [Concomitant]
     Dates: start: 20080801
  18. FLUCONAZOLE [Concomitant]
     Dates: start: 20080801
  19. CELEXA [Concomitant]
     Dates: start: 20081201
  20. PRENATAL VITAMINS [Concomitant]
  21. FLUZONE [Concomitant]
     Dates: start: 20080901
  22. TRIAMCINOLONE [Concomitant]
     Dates: start: 20090101
  23. LEXAPRO [Concomitant]
  24. HYDROCODONE BITARTRATE AND ACETAMINOPHEN [Concomitant]
     Dates: start: 20080201
  25. YASMIN [Suspect]
     Indication: MENORRHAGIA
     Route: 048
     Dates: start: 20071204, end: 20071215
  26. YAZ [Suspect]
     Indication: MENORRHAGIA
     Dosage: AS USED DOSE: UNK
     Route: 048
     Dates: start: 20080101, end: 20081028
  27. AMOXICILLIN [Concomitant]
     Dates: start: 20081201
  28. DICYCLOMINE [Concomitant]
     Dates: start: 20080901
  29. FISH OIL [Concomitant]
     Dates: start: 20081201
  30. FLUTICASONE PROPIONATE [Concomitant]
     Dates: start: 20080201
  31. FEXOFENADINE [Concomitant]
     Dates: start: 20090101

REACTIONS (3)
  - CHOLELITHIASIS [None]
  - CHOLECYSTITIS CHRONIC [None]
  - ABDOMINAL PAIN UPPER [None]
